FAERS Safety Report 6670040-0 (Version None)
Quarter: 2010Q2

REPORT INFORMATION
  Report Type: 
  Country: None (occurrence: None)
  Receive Date: 20100405
  Receipt Date: 20100323
  Transmission Date: 20101027
  Serious: Yes (Other)
  Sender: FDA-Public Use
  Company Number: 1000012912

PATIENT
  Sex: Female

DRUGS (2)
  1. ESCITALOPRAM OXALATE [Suspect]
     Dosage: 20 MG (220 MG,  1 IN 1 D)
  2. ARTANE [Suspect]
     Dosage: 15 MG (5 MG,3 IN 1 D)

REACTIONS (4)
  - DRUG INTERACTION [None]
  - INDIFFERENCE [None]
  - NERVOUS SYSTEM DISORDER [None]
  - SOMNOLENCE [None]
